FAERS Safety Report 9053675 (Version 1)
Quarter: 2013Q1

REPORT INFORMATION
  Report Type: Spontaneous
  Country: CH (occurrence: CH)
  Receive Date: 20130208
  Receipt Date: 20130208
  Transmission Date: 20140127
  Serious: Yes (Life-Threatening)
  Sender: FDA-Public Use
  Company Number: CH-JNJFOC-20130200390

PATIENT
  Age: 74 None
  Sex: Male
  Weight: 90 kg

DRUGS (4)
  1. XARELTO [Suspect]
     Indication: THROMBOSIS PROPHYLAXIS
     Route: 065
     Dates: start: 20121023, end: 20121027
  2. XARELTO [Suspect]
     Indication: ORTHOPAEDIC PROCEDURE
     Route: 065
     Dates: start: 20121023, end: 20121027
  3. NEBIVOLOL [Concomitant]
     Route: 065
  4. AMLODIPINE [Concomitant]
     Route: 065

REACTIONS (2)
  - Cholestasis [Recovered/Resolved]
  - Drug prescribing error [Recovered/Resolved]
